FAERS Safety Report 11219402 (Version 1)
Quarter: 2015Q2

REPORT INFORMATION
  Report Type: Report from Study
  Country: HU (occurrence: HU)
  Receive Date: 20150625
  Receipt Date: 20150625
  Transmission Date: 20150821
  Serious: Yes (Hospitalization, Other)
  Sender: FDA-Public Use
  Company Number: HU-BRISTOL-MYERS SQUIBB COMPANY-19412766

PATIENT
  Age: 75 Year
  Sex: Female

DRUGS (3)
  1. IPILIMUMAB [Suspect]
     Active Substance: IPILIMUMAB
     Indication: SMALL CELL LUNG CANCER
     Dosage: UNK
     Route: 042
     Dates: start: 20130828, end: 20130828
  2. CARBOPLATIN. [Suspect]
     Active Substance: CARBOPLATIN
     Indication: SMALL CELL LUNG CANCER
     Dosage: 03JUL13-03JUL13  24JUL13-24JUL13 (385 MG).  28AUG13-28AUG13 (506 MG)
     Route: 042
     Dates: start: 20130703, end: 20130828
  3. ETOPOSIDE. [Suspect]
     Active Substance: ETOPOSIDE
     Indication: SMALL CELL LUNG CANCER
     Dosage: 03JL13-05JUL13  24JUL13-26JUL13 (160 MG)  28AUG13-30AUG13 (160 MG)
     Route: 042
     Dates: start: 20130703, end: 20130830

REACTIONS (1)
  - Neutropenia [Recovered/Resolved]

NARRATIVE: CASE EVENT DATE: 20130910
